FAERS Safety Report 7300714-X (Version None)
Quarter: 2011Q1

REPORT INFORMATION
  Report Type: 
  Country: None (occurrence: None)
  Receive Date: 20110103
  Receipt Date: 20100604
  Transmission Date: 20110831
  Serious: Yes (Other)
  Sender: FDA-Public Use
  Company Number: US-004551

PATIENT
  Age: 64 Year
  Sex: Male

DRUGS (3)
  1. PROHANCE [Suspect]
     Indication: SPINAL CORD INJURY
     Dosage: 20ML ONCE INTRAVENOUS
     Route: 042
     Dates: start: 20100524, end: 20100524
  2. PROHANCE [Suspect]
     Indication: NUCLEAR MAGNETIC RESONANCE IMAGING BRAIN
     Dosage: 20ML ONCE INTRAVENOUS
     Route: 042
     Dates: start: 20100524, end: 20100524
  3. PROHANCE [Suspect]
     Indication: CEREBROVASCULAR ACCIDENT
     Dosage: 20ML ONCE INTRAVENOUS
     Route: 042
     Dates: start: 20100524, end: 20100524

REACTIONS (1)
  - LARYNGEAL OEDEMA [None]
